FAERS Safety Report 14964022 (Version 1)
Quarter: 2018Q2

REPORT INFORMATION
  Report Type: Spontaneous
  Country: US (occurrence: US)
  Receive Date: 20180510
  Receipt Date: 20180510
  Transmission Date: 20180711
  Serious: Yes (Hospitalization)
  Sender: FDA-Public Use
  Company Number: None

PATIENT
  Age: 68 Year
  Sex: Female

DRUGS (5)
  1. MORPHINE SUL [Concomitant]
     Active Substance: MORPHINE SULFATE
  2. REVLIMID [Concomitant]
     Active Substance: LENALIDOMIDE
  3. NINLARO [Suspect]
     Active Substance: IXAZOMIB CITRATE
     Indication: PLASMA CELL MYELOMA
     Route: 048
     Dates: start: 20170825
  4. OMEPRAZOLE. [Concomitant]
     Active Substance: OMEPRAZOLE
  5. DEXAMETHAZON [Concomitant]
     Active Substance: DEXAMETHASONE

REACTIONS (1)
  - Hospitalisation [None]
